FAERS Safety Report 19779150 (Version 1)
Quarter: 2021Q3

REPORT INFORMATION
  Report Type: Spontaneous
  Country: US (occurrence: US)
  Receive Date: 20210830
  Receipt Date: 20210830
  Transmission Date: 20211014
  Serious: Yes (Other)
  Sender: FDA-Public Use
  Company Number: SAER 2021-002

PATIENT
  Age: 62 Year
  Sex: Male

DRUGS (1)
  1. MOLE REMOVER 10X 30X 1LM [HOMEOPATHICS] [Suspect]
     Active Substance: HOMEOPATHICS
     Route: 061

REACTIONS (2)
  - Dermatitis contact [None]
  - Therapy non-responder [None]

NARRATIVE: CASE EVENT DATE: 20210805
